FAERS Safety Report 13013077 (Version 1)
Quarter: 2016Q4

REPORT INFORMATION
  Report Type: Spontaneous
  Country: US (occurrence: US)
  Receive Date: 20161209
  Receipt Date: 20161209
  Transmission Date: 20170207
  Serious: Yes (Hospitalization)
  Sender: FDA-Public Use
  Company Number: US-PFIZER INC-2016562051

PATIENT
  Age: 67 Year
  Sex: Female

DRUGS (1)
  1. IBRANCE [Suspect]
     Active Substance: PALBOCICLIB
     Dosage: 125 MG, CYCLIC (EVENT DAY OF 21 DAYS)

REACTIONS (4)
  - Immune system disorder [Unknown]
  - Pulmonary congestion [Unknown]
  - Fluid retention [Unknown]
  - Cardiac failure congestive [Unknown]
